FAERS Safety Report 26080475 (Version 1)
Quarter: 2025Q4

REPORT INFORMATION
  Report Type: Spontaneous
  Country: JP (occurrence: JP)
  Receive Date: 20251124
  Receipt Date: 20251124
  Transmission Date: 20260118
  Serious: Yes (Hospitalization, Other)
  Sender: AMGEN
  Company Number: JP-KYOWAKIRIN-2025KK021835

PATIENT
  Age: 90 Year
  Sex: Male

DRUGS (1)
  1. DARBEPOETIN ALFA [Suspect]
     Active Substance: DARBEPOETIN ALFA
     Indication: Myelodysplastic syndrome
     Dosage: 240 UG, 1X/2 WEEKS
     Route: 058

REACTIONS (4)
  - Renal impairment [Unknown]
  - Hospitalisation [Unknown]
  - Haemoglobin increased [Unknown]
  - Off label use [Unknown]
